FAERS Safety Report 6696764-7 (Version None)
Quarter: 2010Q2

REPORT INFORMATION
  Report Type: 
  Country: None (occurrence: None)
  Receive Date: 20100426
  Receipt Date: 20100414
  Transmission Date: 20101027
  Serious: Yes (Hospitalization, Other)
  Sender: FDA-Public Use
  Company Number: US-BAYER-201014201NA

PATIENT
  Sex: Male

DRUGS (8)
  1. CAMPATH [Suspect]
     Indication: CHRONIC LYMPHOCYTIC LEUKAEMIA
     Dosage: TOTAL DAILY DOSE: 30 MG
     Route: 058
     Dates: end: 20100324
  2. CAMPATH [Suspect]
     Dosage: TOTAL DAILY DOSE: 3 MG
     Route: 058
     Dates: start: 20100208
  3. TYLENOL-500 [Concomitant]
     Indication: PREMEDICATION
     Dosage: INFUSION PRE-MEDICATION
  4. BENADRYL [Concomitant]
     Indication: PREMEDICATION
     Dosage: INFUSION PRE-MEDICATION
  5. INSULIN [Concomitant]
  6. VALTREX [Concomitant]
     Indication: INFECTION PROPHYLAXIS
  7. BACTRIM [Concomitant]
     Indication: INFECTION PROPHYLAXIS
  8. ACYCLOVIR [Concomitant]
     Indication: INFECTION PROPHYLAXIS

REACTIONS (7)
  - CHILLS [None]
  - CYTOMEGALOVIRUS TEST POSITIVE [None]
  - HYPERHIDROSIS [None]
  - PYREXIA [None]
  - TREMOR [None]
  - VOMITING [None]
  - WEIGHT DECREASED [None]
